FAERS Safety Report 23767945 (Version 5)
Quarter: 2024Q3

REPORT INFORMATION
  Report Type: Spontaneous
  Country: GB (occurrence: GB)
  Receive Date: 20240422
  Receipt Date: 20240701
  Transmission Date: 20241017
  Serious: Yes (Hospitalization, Other)
  Sender: DR REDDYS
  Company Number: GB-UKI-SPO/GBR/24/0005847

PATIENT
  Sex: Male

DRUGS (2)
  1. AMLODIPINE [Suspect]
     Active Substance: AMLODIPINE BESYLATE
     Indication: Hypertension
  2. AMLODIPINE [Suspect]
     Active Substance: AMLODIPINE BESYLATE
     Route: 065

REACTIONS (6)
  - Loss of consciousness [Unknown]
  - Joint swelling [Unknown]
  - Skin disorder [Unknown]
  - Sleep disorder [Unknown]
  - Nocturia [Unknown]
  - Limb discomfort [Unknown]

NARRATIVE: CASE EVENT DATE: 20220101
